FAERS Safety Report 8972956 (Version 1)
Quarter: 2012Q4

REPORT INFORMATION
  Report Type: 
  Country: KR (occurrence: KR)
  Receive Date: 20121219
  Receipt Date: 20121219
  Transmission Date: 20130627
  Serious: Yes (Other)
  Sender: FDA-Public Use
  Company Number: KR-ASTELLAS-2012JP011799

PATIENT
  Age: 13 Year
  Sex: Female

DRUGS (1)
  1. VESICARE [Suspect]
     Dosage: 5 mg, UID/QD
     Route: 048

REACTIONS (2)
  - Off label use [Unknown]
  - Syncope [Recovered/Resolved]
